FAERS Safety Report 15233972 (Version 1)
Quarter: 2018Q3

REPORT INFORMATION
  Report Type: Spontaneous
  Country: US (occurrence: US)
  Receive Date: 20180709
  Receipt Date: 20180709
  Transmission Date: 20181010
  Serious: Yes (Hospitalization)
  Sender: FDA-Public Use
  Company Number: None

PATIENT
  Age: 62 Year
  Sex: Female

DRUGS (13)
  1. LAMICTAL TAB [Concomitant]
  2. K?TAB TAB 10MEQ CR [Concomitant]
  3. TORSEMIDE TAB [Concomitant]
  4. B?COMPLEX TAB VITAMIN [Concomitant]
  5. PREMARIN INJ [Concomitant]
  6. ORENCIA [Suspect]
     Active Substance: ABATACEPT
     Indication: RHEUMATOID ARTHRITIS
     Route: 058
     Dates: start: 20160204
  7. VITAMIN D3 CAP 2000UNIT [Concomitant]
  8. OMEPRAZOLE CAP [Concomitant]
     Active Substance: OMEPRAZOLE SODIUM
  9. DIOVAN [Concomitant]
     Active Substance: VALSARTAN
  10. SYNTHROID TAB [Concomitant]
  11. HYDROCO/APAP TAB [Concomitant]
  12. CYCLOBENZAPR TAB [Concomitant]
  13. IBUPROFEN TAB [Concomitant]

REACTIONS (1)
  - Pain [None]
